FAERS Safety Report 19125218 (Version 4)
Quarter: 2022Q3

REPORT INFORMATION
  Report Type: Spontaneous
  Country: US (occurrence: US)
  Receive Date: 20210412
  Receipt Date: 20220707
  Transmission Date: 20221027
  Serious: Yes (Other)
  Sender: FDA-Public Use
  Company Number: US-PFIZER INC-2021351079

PATIENT
  Age: 24 Year
  Sex: Male

DRUGS (1)
  1. XELJANZ [Suspect]
     Active Substance: TOFACITINIB CITRATE
     Indication: Colitis ulcerative
     Dosage: 10 MG

REACTIONS (5)
  - Haemorrhage [Unknown]
  - Fatigue [Unknown]
  - Condition aggravated [Unknown]
  - Loss of personal independence in daily activities [Unknown]
  - Illness [Unknown]
